FAERS Safety Report 8177164-X (Version None)
Quarter: 2012Q1

REPORT INFORMATION
  Report Type: 
  Country: None (occurrence: None)
  Receive Date: 20120301
  Receipt Date: 20120221
  Transmission Date: 20120608
  Serious: Yes (Other)
  Sender: FDA-Public Use
  Company Number: CA-B.I. PHARMACEUTICALS,INC./RIDGEFIELD-2012-CN-00393CN

PATIENT
  Age: 46 Year
  Sex: Male

DRUGS (5)
  1. GABAPENTIN [Concomitant]
     Route: 065
  2. GABAPENTIN [Concomitant]
     Route: 065
  3. MIRAPEX [Suspect]
     Dosage: 0.75 MG
     Route: 048
  4. EFFEXOR XR [Concomitant]
     Route: 065
  5. FOLIC ACID [Concomitant]
     Route: 065

REACTIONS (4)
  - SUICIDAL IDEATION [None]
  - FEELING ABNORMAL [None]
  - MOOD ALTERED [None]
  - PATHOLOGICAL GAMBLING [None]
